FAERS Safety Report 16208563 (Version 1)
Quarter: 2019Q2

REPORT INFORMATION
  Report Type: Spontaneous
  Country: US (occurrence: US)
  Receive Date: 20190417
  Receipt Date: 20190417
  Transmission Date: 20190711
  Serious: Yes (Death, Hospitalization)
  Sender: FDA-Public Use
  Company Number: US-TEVA-2019-US-1038488

PATIENT
  Age: 5 Year
  Sex: Female

DRUGS (7)
  1. PREDNISONE. [Suspect]
     Active Substance: PREDNISONE
     Indication: IMMUNOSUPPRESSANT DRUG THERAPY
     Dosage: UNKNOWN INITIAL DOSE
     Route: 065
  2. TACROLIMUS. [Suspect]
     Active Substance: TACROLIMUS
     Dosage: ADMINISTERED A DOSE TO ACHIEVE A TARGET LEVEL OF 3-5 NG/ML. THE DOSE WAS DECREASED FURTHER IN RES...
     Route: 065
  3. PREDNISONE. [Suspect]
     Active Substance: PREDNISONE
     Route: 065
  4. TACROLIMUS. [Suspect]
     Active Substance: TACROLIMUS
     Indication: IMMUNOSUPPRESSANT DRUG THERAPY
     Dosage: UNKNOWN INITIAL DOSE
     Route: 065
  5. GANCICLOVIR. [Concomitant]
     Active Substance: GANCICLOVIR
     Indication: ANTIVIRAL PROPHYLAXIS
     Route: 042
  6. PREDNISONE. [Suspect]
     Active Substance: PREDNISONE
     Dosage: 2.5 MILLIGRAM DAILY;
     Route: 065
  7. TACROLIMUS. [Suspect]
     Active Substance: TACROLIMUS
     Dosage: ADMINISTERED A DOSE TO ACHIEVE A TARGET LEVEL OF 5-8 NG/ML.
     Route: 065

REACTIONS (15)
  - Sepsis [Fatal]
  - Respiratory distress [Unknown]
  - Pleural effusion [Unknown]
  - Cytomegalovirus enteritis [Unknown]
  - Graft versus host disease in gastrointestinal tract [Unknown]
  - Graft versus host disease in skin [Unknown]
  - Multiple organ dysfunction syndrome [Fatal]
  - Parainfluenzae virus infection [Unknown]
  - Pseudomonal bacteraemia [Unknown]
  - Cytomegalovirus infection [Unknown]
  - Graft versus host disease in lung [Unknown]
  - Nephropathy toxic [Unknown]
  - Septic shock [Fatal]
  - Escherichia infection [Unknown]
  - Urinary tract infection bacterial [Unknown]
